FAERS Safety Report 16848291 (Version 1)
Quarter: 2019Q3

REPORT INFORMATION
  Report Type: Spontaneous
  Country: IL (occurrence: IL)
  Receive Date: 20190925
  Receipt Date: 20190925
  Transmission Date: 20191005
  Serious: Yes (Hospitalization)
  Sender: FDA-Public Use
  Company Number: IL-ABBVIE-19K-082-2909751-00

PATIENT
  Age: 18 Year
  Sex: Female

DRUGS (1)
  1. HUMIRA [Suspect]
     Active Substance: ADALIMUMAB
     Indication: HIDRADENITIS
     Route: 058
     Dates: start: 20190501, end: 20190825

REACTIONS (6)
  - Pneumonia [Not Recovered/Not Resolved]
  - Therapeutic product effect delayed [Unknown]
  - Panniculitis [Unknown]
  - Granulomatous lymphadenitis [Unknown]
  - Erythema nodosum [Unknown]
  - Rash [Unknown]

NARRATIVE: CASE EVENT DATE: 2019
